FAERS Safety Report 10050206 (Version 3)
Quarter: 2014Q2

REPORT INFORMATION
  Report Type: Spontaneous
  Country: IT (occurrence: IT)
  Receive Date: 20140401
  Receipt Date: 20140421
  Transmission Date: 20141212
  Serious: Yes (Hospitalization)
  Sender: FDA-Public Use
  Company Number: IT-PFIZER INC-2014088296

PATIENT
  Age: 67 Year
  Sex: Male

DRUGS (7)
  1. TRIATEC [Suspect]
     Indication: HYPERTENSION
     Dosage: 5 MG, DAILY
     Route: 048
     Dates: start: 20130213, end: 20140213
  2. SIMVASTATIN [Concomitant]
     Dosage: 20 MG, UNK
     Route: 048
  3. FUROSEMIDE [Concomitant]
     Dosage: 25 MG, UNK
     Route: 048
  4. AMLODIPINE BESILATE [Concomitant]
     Dosage: 10 MG, UNK
     Route: 048
  5. BISOPROLOL FUMARATE [Concomitant]
     Dosage: 1.25 MG, UNK
     Route: 048
  6. EUTIROX [Concomitant]
     Dosage: UNK
     Route: 048
  7. CARDIOASPIRIN [Concomitant]
     Dosage: UNK
     Route: 048

REACTIONS (2)
  - Fungal infection [Recovering/Resolving]
  - Swollen tongue [Recovering/Resolving]
